FAERS Safety Report 5018626-3 (Version None)
Quarter: 2006Q2

REPORT INFORMATION
  Report Type: 
  Country: None (occurrence: None)
  Receive Date: 20060414
  Receipt Date: 20051226
  Transmission Date: 20061013
  Serious: No
  Sender: FDA-Public Use
  Company Number: 2006SP000025

PATIENT
  Age: 65 Year
  Sex: Male

DRUGS (8)
  1. LUNESTA [Suspect]
     Indication: INSOMNIA
     Dosage: ORAL
     Route: 048
     Dates: start: 20051118
  2. LEXAPRO [Suspect]
     Indication: DEPRESSION
     Dosage: 10 MG;QD;ORAL
     Route: 048
     Dates: start: 20051118
  3. UROXATAL [Concomitant]
  4. DEPAKOTE [Concomitant]
  5. TRICOR [Concomitant]
  6. ATORVASTATIN CALCIUM [Concomitant]
  7. METOPROLOL SUCCINATE [Concomitant]
  8. NEXIUM [Concomitant]

REACTIONS (2)
  - NAUSEA [None]
  - RETCHING [None]
